FAERS Safety Report 11899295 (Version 2)
Quarter: 2016Q1

REPORT INFORMATION
  Report Type: Spontaneous
  Country: IE (occurrence: IE)
  Receive Date: 20160108
  Receipt Date: 20160128
  Transmission Date: 20160526
  Serious: Yes (Other)
  Sender: FDA-Public Use
  Company Number: IE-JNJFOC-20160104115

PATIENT
  Age: 46 Year
  Sex: Male
  Weight: 125 kg

DRUGS (6)
  1. DIFENE [Concomitant]
     Active Substance: DICLOFENAC SODIUM
     Dosage: AS NECESSARY
     Route: 065
  2. MELFEN [Concomitant]
     Dosage: AS NECESSARY
     Route: 065
  3. ENBREL [Concomitant]
     Active Substance: ETANERCEPT
     Dosage: RECENTLY STOPPED
     Route: 065
     Dates: start: 201406
  4. STELARA [Suspect]
     Active Substance: USTEKINUMAB
     Indication: ARTHRITIS
     Route: 058
     Dates: start: 20160105
  5. STELARA [Suspect]
     Active Substance: USTEKINUMAB
     Indication: ARTHRITIS
     Route: 058
     Dates: start: 20151208
  6. STELARA [Suspect]
     Active Substance: USTEKINUMAB
     Indication: ARTHRITIS
     Route: 058
     Dates: start: 201411

REACTIONS (4)
  - Off label use [Unknown]
  - Lower respiratory tract infection [Recovered/Resolved]
  - Pain [Not Recovered/Not Resolved]
  - Product use issue [Unknown]

NARRATIVE: CASE EVENT DATE: 201411
